FAERS Safety Report 6931541-0 (Version None)
Quarter: 2010Q3

REPORT INFORMATION
  Report Type: 
  Country: None (occurrence: None)
  Receive Date: 20100816
  Receipt Date: 20100729
  Transmission Date: 20110219
  Serious: Yes (Life-Threatening, Hospitalization)
  Sender: FDA-Public Use
  Company Number: ACO_01139_2010

PATIENT
  Age: 73 Year
  Sex: Female

DRUGS (10)
  1. AMPYRA [Suspect]
     Indication: MULTIPLE SCLEROSIS
     Dosage: (10 MG BID ORAL)
     Route: 048
     Dates: start: 20100520
  2. ATENOLOL [Concomitant]
  3. FLAXSEED OIL [Concomitant]
  4. MULTI-VITAMINS [Concomitant]
  5. VITAMIN A [Concomitant]
  6. VITAMIN C /00008001/ [Concomitant]
  7. CALCIUM [Concomitant]
  8. CRANBERRY /01512301/ [Concomitant]
  9. ASPIRIN [Concomitant]
  10. ZOCOR [Concomitant]

REACTIONS (8)
  - DEEP VEIN THROMBOSIS [None]
  - DIARRHOEA [None]
  - DROOLING [None]
  - GASTROINTESTINAL HAEMORRHAGE [None]
  - HAEMOGLOBIN DECREASED [None]
  - PNEUMONIA ASPIRATION [None]
  - STATUS EPILEPTICUS [None]
  - VOMITING [None]
